FAERS Safety Report 21272586 (Version 2)
Quarter: 2022Q4

REPORT INFORMATION
  Report Type: Spontaneous
  Country: None (occurrence: US)
  Receive Date: 20220830
  Receipt Date: 20221221
  Transmission Date: 20230113
  Serious: Yes (Life-Threatening, Hospitalization, Disabling)
  Sender: FDA-Public Use
  Company Number: US-California Department of Public Health-2132401

PATIENT
  Age: 5 Month
  Sex: Male
  Weight: 7.9 kg

DRUGS (14)
  1. BABYBIG [Suspect]
     Active Substance: HUMAN BOTULINUM NEUROTOXIN A/B IMMUNE GLOBULIN
     Route: 042
     Dates: start: 20220813, end: 20220813
  2. CEFTRIAXONE [Concomitant]
     Active Substance: CEFTRIAXONE
     Route: 042
  3. SODIUM CHLORIDE [Concomitant]
     Active Substance: SODIUM CHLORIDE
     Route: 040
  4. VANCOMYCIN HYDROCHLORIDE [Concomitant]
     Active Substance: VANCOMYCIN HYDROCHLORIDE
     Route: 042
  5. PRECEDEX [Concomitant]
     Active Substance: DEXMEDETOMIDINE HYDROCHLORIDE
     Route: 042
  6. DEXMEDETOMIDINE [Concomitant]
     Active Substance: DEXMEDETOMIDINE
     Route: 042
  7. DEXTROSE [Concomitant]
     Active Substance: DEXTROSE
     Route: 040
  8. FENTANYL [Concomitant]
     Active Substance: FENTANYL
     Route: 040
  9. GADOBUTROL [Concomitant]
     Active Substance: GADOBUTROL
     Route: 042
  10. GLYCERIN [Concomitant]
     Active Substance: GLYCERIN
     Route: 054
  11. ACETAMINOPHEN [Concomitant]
     Active Substance: ACETAMINOPHEN
     Route: 054
  12. AQUAPHOR HEALING [Concomitant]
     Active Substance: PETROLATUM
     Route: 061
  13. PHENYLEPHRINE/ PYRILAMINE MALEATE NASAL DESCONGASTANT AND ANTIHISTAMIN [Concomitant]
     Route: 045
  14. SENNOSIDES [Concomitant]
     Active Substance: SENNOSIDES
     Route: 050

REACTIONS (6)
  - Respiratory arrest [Recovered/Resolved with Sequelae]
  - Supraventricular tachycardia [Recovered/Resolved]
  - Endotracheal intubation [Recovering/Resolving]
  - Electroencephalogram abnormal [Unknown]
  - Blood gases abnormal [Recovered/Resolved]
  - Blood lactic acid increased [Unknown]

NARRATIVE: CASE EVENT DATE: 20220814
